FAERS Safety Report 16688743 (Version 1)
Quarter: 2019Q4

REPORT INFORMATION
  Report Type: Spontaneous
  Country: US (occurrence: US)
  Receive Date: 20190809
  Receipt Date: 20190809
  Transmission Date: 20200122
  Serious: No
  Sender: FDA-Public Use
  Company Number: None

PATIENT
  Age: 50 Year
  Sex: Female

DRUGS (1)
  1. FERAHEME [Suspect]
     Active Substance: FERUMOXYTOL NON-STOICHIOMETRIC MAGNETITE
     Indication: ANAEMIA
     Dosage: ?          OTHER FREQUENCY:ONCE;?
     Route: 040

REACTIONS (3)
  - Chills [None]
  - Rash [None]
  - Urticaria [None]

NARRATIVE: CASE EVENT DATE: 20190808
